FAERS Safety Report 12336479 (Version 1)
Quarter: 2016Q2

REPORT INFORMATION
  Report Type: Spontaneous
  Country: NO (occurrence: NO)
  Receive Date: 20160505
  Receipt Date: 20160505
  Transmission Date: 20160815
  Serious: Yes (Death)
  Sender: FDA-Public Use
  Company Number: NO-ACCORD-040315

PATIENT
  Age: 64 Year
  Sex: Female

DRUGS (9)
  1. NORTRIPTYLINE [Suspect]
     Active Substance: NORTRIPTYLINE
  2. DIAZEPAM. [Suspect]
     Active Substance: DIAZEPAM
  3. ZOLPIDEM [Suspect]
     Active Substance: ZOLPIDEM\ZOLPIDEM TARTRATE
  4. AMITRIPTYLINE [Suspect]
     Active Substance: AMITRIPTYLINE
  5. NITRAZEPAM [Suspect]
     Active Substance: NITRAZEPAM
  6. CODEINE [Suspect]
     Active Substance: CODEINE
  7. PARACETAMOL [Suspect]
     Active Substance: ACETAMINOPHEN
  8. MIANSERIN [Suspect]
     Active Substance: MIANSERIN
  9. CITALOPRAM [Suspect]
     Active Substance: CITALOPRAM HYDROBROMIDE

REACTIONS (1)
  - Toxicity to various agents [Fatal]
